FAERS Safety Report 24082729 (Version 2)
Quarter: 2024Q3

REPORT INFORMATION
  Report Type: Report from Study
  Country: ES (occurrence: ES)
  Receive Date: 20240712
  Receipt Date: 20240726
  Transmission Date: 20241017
  Serious: Yes (Hospitalization)
  Sender: ROCHE
  Company Number: ES-CELLTRION HEALTHCARE HUNGARY KFT-2024ES006422

PATIENT
  Age: 67 Year
  Sex: Male
  Weight: 75 kg

DRUGS (14)
  1. RITUXIMAB [Suspect]
     Active Substance: RITUXIMAB
     Indication: Follicular lymphoma
     Dosage: LAST DOSE OF RITUXIMAB PRIOR TO THE SERIOUS ADVERSE EVENT (SAE) WAS TAKEN ON 06/JUL/2022
     Route: 042
     Dates: end: 20220706
  2. RITUXIMAB [Suspect]
     Active Substance: RITUXIMAB
     Dosage: 375 MILLIGRAM/SQ. METER (720) FOR 5 CYCLES? FREQUENCY TEXT:CYCLICAL
     Route: 042
     Dates: start: 20220316
  3. RITUXIMAB [Suspect]
     Active Substance: RITUXIMAB
     Dosage: 375 MILLIGRAM/SQ. METER (705MG) FOR 5 CYCLES
     Route: 042
  4. RITUXIMAB [Suspect]
     Active Substance: RITUXIMAB
     Dosage: 375 MILLIGRAM/SQ. METER (705 MG) FOR 5 CYCLES? FREQUENCY TEXT:CYCLICAL
     Route: 042
  5. TAFASITAMAB-CXIX [Suspect]
     Active Substance: TAFASITAMAB-CXIX
     Indication: Follicular lymphoma
     Dosage: THE LAST DOSE PRIOR TO THE SAE WAS TAKEN ON 22/DEC/2022
     Route: 065
     Dates: end: 20221222
  6. TAFASITAMAB-CXIX [Suspect]
     Active Substance: TAFASITAMAB-CXIX
     Dosage: THE LAST DOSE PRIOR TO THE SAE WAS TAKEN ON 09/MAR/2023
     Route: 065
     Dates: end: 20230309
  7. TAFASITAMAB-CXIX [Suspect]
     Active Substance: TAFASITAMAB-CXIX
     Dosage: UNK
     Route: 042
     Dates: start: 20230126
  8. TAFASITAMAB-CXIX [Suspect]
     Active Substance: TAFASITAMAB-CXIX
     Dosage: UNK
     Route: 042
     Dates: end: 20230104
  9. TAFASITAMAB-CXIX [Suspect]
     Active Substance: TAFASITAMAB-CXIX
     Dosage: UNK
     Route: 042
     Dates: start: 20220316
  10. LENALIDOMIDE [Suspect]
     Active Substance: LENALIDOMIDE
     Indication: Follicular lymphoma
     Dosage: LAST DOSE OF LENALIDOMIDE PRIOR TO THE SAE WAS TAKEN ON 15/MAR/2023
     Route: 065
     Dates: end: 20230315
  11. LENALIDOMIDE [Suspect]
     Active Substance: LENALIDOMIDE
     Dosage: 10 MILLIGRAM, QD
     Route: 048
     Dates: end: 20230104
  12. LENALIDOMIDE [Suspect]
     Active Substance: LENALIDOMIDE
     Dosage: 20 MILLIGRAM, QD ON DAYS 1 TO 21 FOR 12 CYCLES
     Route: 048
     Dates: start: 20220316
  13. LENALIDOMIDE [Suspect]
     Active Substance: LENALIDOMIDE
     Dosage: LAST DOSE OF LENALIDOMIDE PRIOR TO THE SAE WAS TAKEN ON 03/JAN/2023
     Route: 065
     Dates: end: 20230103
  14. LENALIDOMIDE [Suspect]
     Active Substance: LENALIDOMIDE
     Dosage: LAST DOSE OF LENALIDOMIDE PRIOR TO THE SAE WAS TAKEN ON 03/JAN/2023
     Route: 048
     Dates: start: 20230126

REACTIONS (2)
  - Hypotension [Recovered/Resolved]
  - Pneumonia [Recovered/Resolved]

NARRATIVE: CASE EVENT DATE: 20230104
